FAERS Safety Report 19362054 (Version 3)
Quarter: 2021Q2

REPORT INFORMATION
  Report Type: Spontaneous
  Country: US (occurrence: US)
  Receive Date: 20210603
  Receipt Date: 20210617
  Transmission Date: 20210717
  Serious: No
  Sender: FDA-Public Use
  Company Number: US-ELI_LILLY_AND_COMPANY-US202105012086

PATIENT
  Age: 82 Year
  Sex: Female

DRUGS (2)
  1. NOVOLIN N [Concomitant]
     Active Substance: INSULIN HUMAN
     Indication: PRODUCT USED FOR UNKNOWN INDICATION
     Dosage: LOW DOSE
  2. TRULICITY [Suspect]
     Active Substance: DULAGLUTIDE
     Indication: PRODUCT USED FOR UNKNOWN INDICATION
     Dosage: 0.75 MG, WEEKLY (1/W)
     Route: 065

REACTIONS (7)
  - Depressed mood [Unknown]
  - Feeling abnormal [Unknown]
  - Extra dose administered [Unknown]
  - Gait inability [Unknown]
  - Confusional state [Unknown]
  - Inappropriate schedule of product administration [Unknown]
  - Nervousness [Unknown]

NARRATIVE: CASE EVENT DATE: 20210525
